FAERS Safety Report 6711781-6 (Version None)
Quarter: 2010Q2

REPORT INFORMATION
  Report Type: 
  Country: None (occurrence: None)
  Receive Date: 20100505
  Receipt Date: 20100428
  Transmission Date: 20101027
  Serious: Yes (Other)
  Sender: FDA-Public Use
  Company Number: B0650330A

PATIENT
  Sex: Female

DRUGS (3)
  1. PAXIL [Suspect]
     Indication: DRUG USE FOR UNKNOWN INDICATION
     Route: 065
  2. PAXIL [Suspect]
     Route: 065
  3. PAXIL [Suspect]
     Route: 065

REACTIONS (8)
  - AGGRESSION [None]
  - ANXIETY [None]
  - BLOOD PRESSURE FLUCTUATION [None]
  - DISTURBANCE IN ATTENTION [None]
  - DRUG WITHDRAWAL SYNDROME [None]
  - DYSPNOEA [None]
  - IRRITABILITY [None]
  - SEROTONIN SYNDROME [None]
